FAERS Safety Report 4412877-4 (Version None)
Quarter: 2004Q3

REPORT INFORMATION
  Report Type: 
  Country: None (occurrence: None)
  Receive Date: 20040727
  Receipt Date: 20040712
  Transmission Date: 20050211
  Serious: Yes (Other)
  Sender: FDA-Public Use
  Company Number: US-2004-028622

PATIENT
  Age: 91 Year
  Sex: Female

DRUGS (12)
  1. REFLUDAN [Suspect]
     Indication: HEPARIN-INDUCED THROMBOCYTOPENIA
     Dosage: 8 ML/H, INTRAVENOUS
     Route: 042
     Dates: start: 20040709, end: 20040712
  2. WARFARIN (WARFARIN) [Suspect]
     Indication: ANTICOAGULANT THERAPY
     Dosage: SEE IMAGE
     Route: 048
     Dates: start: 20040710, end: 20040710
  3. WARFARIN (WARFARIN) [Suspect]
     Indication: ANTICOAGULANT THERAPY
     Dosage: SEE IMAGE
     Route: 048
     Dates: start: 20040711, end: 20040711
  4. CIPROFLOXACIN [Suspect]
     Indication: URINARY TRACT INFECTION
     Dosage: SEE IMAGE
     Route: 048
     Dates: start: 20040710, end: 20040712
  5. CIPROFLOXACIN [Suspect]
     Indication: URINARY TRACT INFECTION
     Dosage: SEE IMAGE
     Route: 048
     Dates: start: 20040712, end: 20040713
  6. ACETAMINOPHEN [Concomitant]
  7. SEROQUEL [Concomitant]
  8. SERTRALINE HCL [Concomitant]
  9. PROVENTIL SOLUTION [Concomitant]
  10. ATROVENT NEBULES (IPRATROPIUM BROMIDE) [Concomitant]
  11. OLANZAPINE [Concomitant]
  12. CALCIUM (CALCIUM) [Concomitant]

REACTIONS (3)
  - ACTIVATED PARTIAL THROMBOPLASTIN TIME PROLONGED [None]
  - INTERNATIONAL NORMALISED RATIO INCREASED [None]
  - URINARY TRACT INFECTION [None]
